FAERS Safety Report 20996993 (Version 1)
Quarter: 2022Q2

REPORT INFORMATION
  Report Type: Other
  Country: DE (occurrence: None)
  Receive Date: 20220623
  Receipt Date: 20220623
  Transmission Date: 20220721
  Serious: Yes (Other)
  Sender: FDA-Public Use
  Company Number: DE-ROCHE-3117818

PATIENT
  Sex: Female

DRUGS (1)
  1. OCRELIZUMAB [Suspect]
     Active Substance: OCRELIZUMAB
     Indication: Primary progressive multiple sclerosis
     Dosage: ON 12/NOV/2021: MOST RECENT DOSE (PRIOR TO EVENT)?ON DAYS 1 AND 15 FOR THE FIRST DOSE
     Route: 042
     Dates: start: 20211028

REACTIONS (1)
  - Infection [Unknown]
